FAERS Safety Report 10592405 (Version 1)
Quarter: 2014Q4

REPORT INFORMATION
  Report Type: Spontaneous
  Country: JP (occurrence: None)
  Receive Date: 20141117
  Receipt Date: 20141117
  Transmission Date: 20150529
  Serious: Yes (Hospitalization, Other)
  Sender: FDA-Public Use
  Company Number: AXC-2014-000693

PATIENT
  Age: 66 Year
  Sex: Female

DRUGS (1)
  1. URSODEOXYCHOLIC ACID [Suspect]
     Active Substance: URSODIOL
     Indication: BILIARY CIRRHOSIS PRIMARY
     Route: 048

REACTIONS (8)
  - Myositis [None]
  - Palpitations [None]
  - Posture abnormal [None]
  - Arrhythmia [None]
  - Hypercapnia [None]
  - Weight decreased [None]
  - Dyspnoea [None]
  - Respiratory muscle weakness [None]
